FAERS Safety Report 5934644-2 (Version None)
Quarter: 2008Q4

REPORT INFORMATION
  Report Type: 
  Country: None (occurrence: None)
  Receive Date: 20081010
  Receipt Date: 20080724
  Transmission Date: 20090506
  Serious: No
  Sender: FDA-Public Use
  Company Number: 2008BM000146

PATIENT
  Age: 14 Year
  Sex: Female
  Weight: 37.195 kg

DRUGS (3)
  1. KUVAN [Suspect]
     Indication: PHENYLKETONURIA
     Dosage: 800 MG;QD;PO
     Route: 048
     Dates: start: 20080605, end: 20080725
  2. ETHINYLESTRADIOL W/ [Concomitant]
  3. NORETHINDRONE [Concomitant]

REACTIONS (2)
  - ABDOMINAL DISCOMFORT [None]
  - ABDOMINAL PAIN UPPER [None]
